FAERS Safety Report 4759796-1 (Version None)
Quarter: 2005Q3

REPORT INFORMATION
  Report Type: 
  Country: None (occurrence: None)
  Receive Date: 20050831
  Receipt Date: 20050831
  Transmission Date: 20060218
  Serious: Yes (Other)
  Sender: FDA-Public Use
  Company Number: None

PATIENT
  Age: 58 Year
  Sex: Female
  Weight: 70.7611 kg

DRUGS (8)
  1. SEROQUEL [Suspect]
     Indication: DRUG DEPENDENCE
     Dosage: 25 MG AM, NOON + 150MG QHS
     Dates: start: 20050712
  2. HYDROCODONE [Suspect]
     Indication: DRUG DEPENDENCE
     Dosage: 10 MG
     Dates: start: 20050710
  3. ZYPREXA [Concomitant]
  4. PHENERGAN [Concomitant]
  5. CLONIDINE [Concomitant]
  6. LIBRIUM [Concomitant]
  7. NEURONTIN [Concomitant]
  8. ROBAXIN [Concomitant]

REACTIONS (10)
  - BLOOD PRESSURE DECREASED [None]
  - BLOOD PRESSURE SYSTOLIC INCREASED [None]
  - BODY TEMPERATURE DECREASED [None]
  - DISORIENTATION [None]
  - MUSCLE SPASMS [None]
  - NAUSEA [None]
  - PSYCHOMOTOR HYPERACTIVITY [None]
  - RESPIRATORY RATE INCREASED [None]
  - RESTLESSNESS [None]
  - VOMITING [None]
